FAERS Safety Report 7244171-0 (Version None)
Quarter: 2011Q1

REPORT INFORMATION
  Report Type: 
  Country: None (occurrence: None)
  Receive Date: 20110119
  Receipt Date: 20110119
  Transmission Date: 20110831
  Serious: No
  Sender: FDA-Public Use
  Company Number: None

PATIENT
  Sex: Female
  Weight: 58.514 kg

DRUGS (1)
  1. BONIVA [Suspect]

REACTIONS (13)
  - BACK PAIN [None]
  - RESPIRATORY RATE INCREASED [None]
  - COGNITIVE DISORDER [None]
  - PELVIC PAIN [None]
  - HEADACHE [None]
  - SLEEP DISORDER DUE TO GENERAL MEDICAL CONDITION, INSOMNIA TYPE [None]
  - MUSCLE SPASMS [None]
  - SUFFOCATION FEELING [None]
  - HYPOVENTILATION [None]
  - EXPRESSIVE LANGUAGE DISORDER [None]
  - PAIN IN EXTREMITY [None]
  - MYALGIA [None]
  - DRUG INEFFECTIVE [None]
